FAERS Safety Report 4713405-6 (Version None)
Quarter: 2005Q3

REPORT INFORMATION
  Report Type: 
  Country: None (occurrence: None)
  Receive Date: 20050713
  Receipt Date: 20050613
  Transmission Date: 20060218
  Serious: Yes (Hospitalization)
  Sender: FDA-Public Use
  Company Number: US-SANOFI-SYNTHELABO-F01200501010

PATIENT
  Sex: Male
  Weight: 74.5 kg

DRUGS (13)
  1. OXALIPLATIN [Suspect]
     Indication: NON-SMALL CELL LUNG CANCER
     Route: 042
     Dates: start: 20050603, end: 20050603
  2. GEMCITABINE [Suspect]
     Route: 042
     Dates: start: 20050610, end: 20050610
  3. DECADRON [Concomitant]
     Route: 042
     Dates: start: 20050603, end: 20050603
  4. DECADRON [Concomitant]
     Route: 042
     Dates: start: 20050610, end: 20050610
  5. ALOXI [Concomitant]
     Route: 042
     Dates: start: 20050603, end: 20050603
  6. ALOXI [Concomitant]
     Route: 042
     Dates: start: 20050610, end: 20050610
  7. ARANESP [Concomitant]
     Indication: ANAEMIA
     Route: 058
     Dates: start: 20050610, end: 20050610
  8. ZESTRIL [Concomitant]
     Indication: MITRAL VALVE PROLAPSE
     Route: 048
     Dates: start: 19950101, end: 20050611
  9. EXTRA STRENGTH TYLENOL [Concomitant]
     Indication: HEADACHE
     Dosage: 500-1000MG PRN
     Route: 048
     Dates: start: 19800101
  10. ASCORBIC ACID [Concomitant]
     Route: 048
     Dates: start: 20000101, end: 20050614
  11. COMPAZINE [Concomitant]
     Indication: NAUSEA
     Route: 048
     Dates: start: 20050218, end: 20050614
  12. COUMADIN [Concomitant]
     Route: 048
     Dates: start: 20050311, end: 20050611
  13. PERCOCET [Concomitant]
     Indication: PAIN
     Dosage: 5/325 MG Q4H PRN
     Route: 048
     Dates: start: 20050310

REACTIONS (2)
  - ATRIAL FIBRILLATION [None]
  - PLEURAL EFFUSION [None]
